FAERS Safety Report 20847436 (Version 3)
Quarter: 2022Q2

REPORT INFORMATION
  Report Type: Report from Study
  Country: CN (occurrence: None)
  Receive Date: 20220519
  Receipt Date: 20220607
  Transmission Date: 20220720
  Serious: Yes (Other)
  Sender: FDA-Public Use
  Company Number: CN-ROCHE-3010586

PATIENT
  Age: 40 Year
  Sex: Male
  Weight: 89 kg

DRUGS (8)
  1. TIRAGOLUMAB [Suspect]
     Active Substance: TIRAGOLUMAB
     Indication: Squamous cell carcinoma of lung
     Dosage: DATE OF MOST RECENT DOSE OF TIRAGOLUMAB (840 MG) PRIOR TO AE AND SAE: 31/DEC/2021
     Route: 042
     Dates: start: 20211204
  2. TIRAGOLUMAB [Suspect]
     Active Substance: TIRAGOLUMAB
     Indication: Non-small cell lung cancer stage III
  3. ATEZOLIZUMAB [Suspect]
     Active Substance: ATEZOLIZUMAB
     Indication: Squamous cell carcinoma of lung
     Dosage: DATE OF MOST RECENT DOSE OF ATEZOLIZUMAB (1680 MG) PRIOR TO AE AND SAE: 31/DEC/2021
     Route: 041
     Dates: start: 20211204
  4. IMODIUM [Concomitant]
     Active Substance: LOPERAMIDE HYDROCHLORIDE
     Indication: Diarrhoea
     Dates: start: 20220101, end: 20220115
  5. LICORICE [Concomitant]
     Active Substance: LICORICE
     Indication: Cough
     Dates: start: 20211110
  6. FLUIMUCIL [Concomitant]
     Active Substance: ACETYLCYSTEINE
     Indication: Cough
     Dates: start: 20211110
  7. MONTMORILLONITE [Concomitant]
     Active Substance: MONTMORILLONITE
     Indication: Diarrhoea
     Dates: start: 20211222, end: 20220101
  8. NORFLOXACIN [Concomitant]
     Active Substance: NORFLOXACIN
     Indication: Diarrhoea
     Dates: start: 20211223, end: 20220101

REACTIONS (2)
  - Lipase increased [Recovered/Resolved]
  - Colitis [Recovered/Resolved]

NARRATIVE: CASE EVENT DATE: 20220124
